FAERS Safety Report 25925249 (Version 1)
Quarter: 2025Q4

REPORT INFORMATION
  Report Type: Spontaneous
  Country: US (occurrence: None)
  Receive Date: 20251013
  Receipt Date: 20251013
  Transmission Date: 20260118
  Serious: Yes (Disabling, Other)
  Sender: FDA-CTU
  Company Number: None

PATIENT
  Age: 19 Year
  Sex: Female
  Weight: 65.25 kg

DRUGS (1)
  1. SEROQUEL [Suspect]
     Active Substance: QUETIAPINE FUMARATE
     Indication: Anxiety
     Dosage: OTHER QUANTITY : 1 TABLET(S);?FREQUENCY : AT BEDTIME;?
     Route: 048
     Dates: start: 20191001, end: 20230315

REACTIONS (17)
  - Sexual dysfunction [None]
  - Insomnia [None]
  - Loss of personal independence in daily activities [None]
  - Fear [None]
  - Hunger [None]
  - Pain [None]
  - Decreased appetite [None]
  - Gastritis [None]
  - Peptic ulcer [None]
  - Feeding disorder [None]
  - Hypoaesthesia [None]
  - Hypoaesthesia [None]
  - Paraesthesia [None]
  - Muscular weakness [None]
  - Carpal tunnel decompression [None]
  - Loss of libido [None]
  - Anorgasmia [None]

NARRATIVE: CASE EVENT DATE: 20230415
